FAERS Safety Report 5265970-0 (Version None)
Quarter: 2007Q1

REPORT INFORMATION
  Report Type: 
  Country: None (occurrence: None)
  Receive Date: 20070313
  Receipt Date: 20070313
  Transmission Date: 20070707
  Serious: Yes (Other)
  Sender: FDA-Public Use
  Company Number: None

PATIENT
  Age: 49 Year
  Sex: Female
  Weight: 68.4932 kg

DRUGS (1)
  1. OXYBUTYIN ER 5 MG QD [Suspect]
     Indication: URINARY INCONTINENCE
     Dosage: 5 MG 1 PO QD
     Route: 048
     Dates: start: 20070307, end: 20070312

REACTIONS (2)
  - DISEASE RECURRENCE [None]
  - URINARY INCONTINENCE [None]
